FAERS Safety Report 14002424 (Version 4)
Quarter: 2020Q2

REPORT INFORMATION
  Report Type: Spontaneous
  Country: US (occurrence: US)
  Receive Date: 20170922
  Receipt Date: 20200527
  Transmission Date: 20200713
  Serious: Yes (Death, Hospitalization)
  Sender: FDA-Public Use
  Company Number: US-JNJFOC-20170820663

PATIENT
  Age: 77 Year
  Sex: Female

DRUGS (3)
  1. XARELTO [Suspect]
     Active Substance: RIVAROXABAN
     Indication: SURGERY
     Route: 048
     Dates: start: 20131030, end: 20131106
  2. XARELTO [Suspect]
     Active Substance: RIVAROXABAN
     Indication: THROMBOSIS PROPHYLAXIS
  3. AGGRENOX [Suspect]
     Active Substance: ASPIRIN\DIPYRIDAMOLE
     Indication: ATRIAL FIBRILLATION
     Route: 065

REACTIONS (4)
  - Abdominal wall haematoma [Fatal]
  - Haemoptysis [Unknown]
  - Renal haemorrhage [Unknown]
  - Retroperitoneal haemorrhage [Fatal]

NARRATIVE: CASE EVENT DATE: 20131030
